FAERS Safety Report 10719130 (Version 2)
Quarter: 2015Q1

REPORT INFORMATION
  Report Type: Spontaneous
  Country: US (occurrence: US)
  Receive Date: 20150119
  Receipt Date: 20150119
  Transmission Date: 20150721
  Serious: No
  Sender: FDA-Public Use
  Company Number: US-UNITED THERAPEUTICS-UNT-2014-002974

PATIENT
  Age: 52 Year
  Sex: Female
  Weight: 54.42 kg

DRUGS (2)
  1. LETAIRIS [Suspect]
     Active Substance: AMBRISENTAN
     Indication: PRODUCT USED FOR UNKNOWN INDICATION
     Dosage: UNK
     Route: 065
     Dates: start: 20140618, end: 20140622
  2. REMODULIN [Suspect]
     Active Substance: TREPROSTINIL
     Indication: PULMONARY HYPERTENSION
     Dosage: 0.035 ?G/KG/MIN, CONTINUING
     Route: 058
     Dates: start: 20140531

REACTIONS (5)
  - Malaise [Unknown]
  - Vision blurred [Unknown]
  - Headache [Recovered/Resolved]
  - Oedema peripheral [Unknown]
  - Eye swelling [Unknown]

NARRATIVE: CASE EVENT DATE: 2014
